FAERS Safety Report 8088432-4 (Version None)
Quarter: 2012Q1

REPORT INFORMATION
  Report Type: 
  Country: None (occurrence: None)
  Receive Date: 20120128
  Receipt Date: 20110601
  Transmission Date: 20120608
  Serious: No
  Sender: FDA-Public Use
  Company Number: US-ABBOTT-11P-163-0729627-00

PATIENT
  Age: 61 Year
  Sex: Female

DRUGS (6)
  1. ATACAND [Concomitant]
     Indication: HYPERTENSION
  2. VITAMIN D [Concomitant]
     Indication: PRODUCT USED FOR UNKNOWN INDICATION
     Dosage: WEEKLY
  3. ZYRTEC [Concomitant]
     Indication: HYPERSENSITIVITY
     Dosage: DAILY
  4. LIPITOR [Concomitant]
     Indication: BLOOD CHOLESTEROL INCREASED
  5. HUMIRA [Suspect]
     Indication: PSORIASIS
     Dates: start: 20100101
  6. ASPIRIN [Concomitant]
     Indication: PRODUCT USED FOR UNKNOWN INDICATION
     Dosage: DAILY

REACTIONS (3)
  - RASH ERYTHEMATOUS [None]
  - RASH [None]
  - RASH PAPULAR [None]
